FAERS Safety Report 7679986-8 (Version None)
Quarter: 2011Q3

REPORT INFORMATION
  Report Type: 
  Country: None (occurrence: None)
  Receive Date: 20110812
  Receipt Date: 20110801
  Transmission Date: 20111222
  Serious: Yes (Hospitalization)
  Sender: FDA-Public Use
  Company Number: US-JNJFOC-20060800162

PATIENT
  Sex: Female
  Weight: 24 kg

DRUGS (6)
  1. INFLIXIMAB [Suspect]
     Route: 042
     Dates: start: 20031230
  2. INFLIXIMAB [Suspect]
     Route: 042
     Dates: start: 20040520
  3. INFLIXIMAB [Suspect]
     Indication: CROHN'S DISEASE
     Route: 042
     Dates: end: 20060914
  4. AZATHIOPRINE [Concomitant]
  5. PREDNISONE [Concomitant]
  6. PREVACID [Concomitant]

REACTIONS (1)
  - CROHN'S DISEASE [None]
